FAERS Safety Report 21023687 (Version 4)
Quarter: 2024Q2

REPORT INFORMATION
  Report Type: Report from Study
  Country: US (occurrence: US)
  Receive Date: 20220629
  Receipt Date: 20240424
  Transmission Date: 20240716
  Serious: Yes (Hospitalization, Other)
  Sender: FDA-Public Use
  Company Number: US-TAKEDA-2022TUS042915

PATIENT
  Age: 4 Year
  Sex: Male

DRUGS (182)
  1. TEDUGLUTIDE [Suspect]
     Active Substance: TEDUGLUTIDE
     Indication: Short-bowel syndrome
     Dosage: 0.54 MILLIGRAM, QD
     Route: 042
     Dates: start: 20200615, end: 20201215
  2. TEDUGLUTIDE [Suspect]
     Active Substance: TEDUGLUTIDE
     Indication: Short-bowel syndrome
     Dosage: 0.54 MILLIGRAM, QD
     Route: 042
     Dates: start: 20200615, end: 20201215
  3. TEDUGLUTIDE [Suspect]
     Active Substance: TEDUGLUTIDE
     Indication: Short-bowel syndrome
     Dosage: 0.54 MILLIGRAM, QD
     Route: 042
     Dates: start: 20200615, end: 20201215
  4. TEDUGLUTIDE [Suspect]
     Active Substance: TEDUGLUTIDE
     Indication: Short-bowel syndrome
     Dosage: 0.54 MILLIGRAM, QD
     Route: 042
     Dates: start: 20200615, end: 20201215
  5. TEDUGLUTIDE [Suspect]
     Active Substance: TEDUGLUTIDE
     Dosage: 0.73 MILLIGRAM, QD
     Route: 042
     Dates: start: 20201216
  6. TEDUGLUTIDE [Suspect]
     Active Substance: TEDUGLUTIDE
     Dosage: 0.73 MILLIGRAM, QD
     Route: 042
     Dates: start: 20201216
  7. TEDUGLUTIDE [Suspect]
     Active Substance: TEDUGLUTIDE
     Dosage: 0.73 MILLIGRAM, QD
     Route: 042
     Dates: start: 20201216
  8. TEDUGLUTIDE [Suspect]
     Active Substance: TEDUGLUTIDE
     Dosage: 0.73 MILLIGRAM, QD
     Route: 042
     Dates: start: 20201216
  9. PHENOBARBITAL [Concomitant]
     Active Substance: PHENOBARBITAL
     Indication: Biliary dyskinesia
     Dosage: 0.75 MILLIGRAM, QD
     Route: 048
     Dates: end: 20160905
  10. PIPERACILLIN SODIUM\TAZOBACTAM SODIUM [Concomitant]
     Active Substance: PIPERACILLIN SODIUM\TAZOBACTAM SODIUM
     Indication: Bacteraemia
     Dosage: 720 MILLIGRAM
     Route: 042
     Dates: start: 20190614, end: 20190616
  11. PIPERACILLIN SODIUM\TAZOBACTAM SODIUM [Concomitant]
     Active Substance: PIPERACILLIN SODIUM\TAZOBACTAM SODIUM
     Indication: Sepsis
     Dosage: 780 MILLIGRAM
     Route: 042
     Dates: start: 20180219, end: 20180220
  12. PIPERACILLIN SODIUM\TAZOBACTAM SODIUM [Concomitant]
     Active Substance: PIPERACILLIN SODIUM\TAZOBACTAM SODIUM
     Indication: Device related sepsis
     Dosage: 780 MILLIGRAM
     Route: 042
     Dates: start: 20180220, end: 20180222
  13. PIPERACILLIN SODIUM\TAZOBACTAM SODIUM [Concomitant]
     Active Substance: PIPERACILLIN SODIUM\TAZOBACTAM SODIUM
     Indication: Skin infection
     Dosage: 900 MILLIGRAM
     Route: 042
     Dates: start: 20180522, end: 20180524
  14. PIPERACILLIN SODIUM\TAZOBACTAM SODIUM [Concomitant]
     Active Substance: PIPERACILLIN SODIUM\TAZOBACTAM SODIUM
     Indication: Pain
     Dosage: 1560 MILLIGRAM
     Route: 042
     Dates: start: 20180707, end: 20180710
  15. PIPERACILLIN SODIUM\TAZOBACTAM SODIUM [Concomitant]
     Active Substance: PIPERACILLIN SODIUM\TAZOBACTAM SODIUM
     Indication: Pyrexia
     Dosage: 1440 MILLIGRAM
     Route: 042
     Dates: start: 20180211, end: 20180212
  16. PIPERACILLIN SODIUM\TAZOBACTAM SODIUM [Concomitant]
     Active Substance: PIPERACILLIN SODIUM\TAZOBACTAM SODIUM
     Dosage: 100 MILLIGRAM/KILOGRAM
     Route: 042
     Dates: start: 20190803, end: 20190805
  17. PIPERACILLIN SODIUM\TAZOBACTAM SODIUM [Concomitant]
     Active Substance: PIPERACILLIN SODIUM\TAZOBACTAM SODIUM
     Dosage: 660 MILLIGRAM, QID
     Route: 042
     Dates: start: 20170623, end: 20170624
  18. PIPERACILLIN SODIUM\TAZOBACTAM SODIUM [Concomitant]
     Active Substance: PIPERACILLIN SODIUM\TAZOBACTAM SODIUM
     Dosage: 660 MILLIGRAM, QID
     Route: 042
     Dates: start: 20170720, end: 20170721
  19. PIPERACILLIN SODIUM\TAZOBACTAM SODIUM [Concomitant]
     Active Substance: PIPERACILLIN SODIUM\TAZOBACTAM SODIUM
     Dosage: 720 MILLIGRAM, QID
     Route: 042
     Dates: start: 20170826, end: 20170826
  20. PIPERACILLIN SODIUM\TAZOBACTAM SODIUM [Concomitant]
     Active Substance: PIPERACILLIN SODIUM\TAZOBACTAM SODIUM
     Dosage: 576 MILLIGRAM, QID
     Route: 042
     Dates: start: 20170519, end: 20170521
  21. PIPERACILLIN SODIUM\TAZOBACTAM SODIUM [Concomitant]
     Active Substance: PIPERACILLIN SODIUM\TAZOBACTAM SODIUM
     Dosage: 396 MILLIGRAM, QID
     Route: 042
     Dates: start: 20161109, end: 20161111
  22. PIPERACILLIN SODIUM\TAZOBACTAM SODIUM [Concomitant]
     Active Substance: PIPERACILLIN SODIUM\TAZOBACTAM SODIUM
     Dosage: 528 MILLIGRAM, QID
     Route: 042
     Dates: start: 20170311, end: 20170313
  23. PIPERACILLIN SODIUM\TAZOBACTAM SODIUM [Concomitant]
     Active Substance: PIPERACILLIN SODIUM\TAZOBACTAM SODIUM
     Dosage: 528 MILLIGRAM, QID
     Route: 042
     Dates: start: 20170405, end: 20170408
  24. PIPERACILLIN SODIUM\TAZOBACTAM SODIUM [Concomitant]
     Active Substance: PIPERACILLIN SODIUM\TAZOBACTAM SODIUM
     Dosage: 720 MILLIGRAM, QID
     Route: 042
     Dates: start: 20170926, end: 20170928
  25. PIPERACILLIN SODIUM\TAZOBACTAM SODIUM [Concomitant]
     Active Substance: PIPERACILLIN SODIUM\TAZOBACTAM SODIUM
     Dosage: 372 MILLIGRAM, QID
     Route: 042
     Dates: start: 20161019, end: 20161021
  26. PIPERACILLIN SODIUM\TAZOBACTAM SODIUM [Concomitant]
     Active Substance: PIPERACILLIN SODIUM\TAZOBACTAM SODIUM
     Dosage: 720 MILLIGRAM, QID
     Route: 042
     Dates: start: 20171214, end: 20171217
  27. PIPERACILLIN SODIUM\TAZOBACTAM SODIUM [Concomitant]
     Active Substance: PIPERACILLIN SODIUM\TAZOBACTAM SODIUM
     Dosage: 660 MILLIGRAM, QID
     Route: 042
     Dates: start: 20170623, end: 20170624
  28. PIPERACILLIN SODIUM\TAZOBACTAM SODIUM [Concomitant]
     Active Substance: PIPERACILLIN SODIUM\TAZOBACTAM SODIUM
     Dosage: 1140 MILLIGRAM
     Route: 042
     Dates: start: 20191209, end: 20191211
  29. PIPERACILLIN SODIUM\TAZOBACTAM SODIUM [Concomitant]
     Active Substance: PIPERACILLIN SODIUM\TAZOBACTAM SODIUM
     Dosage: 1140 MILLIGRAM, TID
     Route: 042
     Dates: start: 20200212, end: 20200214
  30. PIPERACILLIN SODIUM\TAZOBACTAM SODIUM [Concomitant]
     Active Substance: PIPERACILLIN SODIUM\TAZOBACTAM SODIUM
     Dosage: 1500 MILLIGRAM
     Route: 042
     Dates: start: 20201130, end: 20201130
  31. PIPERACILLIN SODIUM\TAZOBACTAM SODIUM [Concomitant]
     Active Substance: PIPERACILLIN SODIUM\TAZOBACTAM SODIUM
     Dosage: 1500 MILLIGRAM, QID
     Route: 042
     Dates: start: 20201221, end: 20201222
  32. PIPERACILLIN SODIUM\TAZOBACTAM SODIUM [Concomitant]
     Active Substance: PIPERACILLIN SODIUM\TAZOBACTAM SODIUM
     Dosage: 1620 MILLIGRAM
     Route: 042
     Dates: start: 20210223, end: 20210224
  33. PIPERACILLIN SODIUM\TAZOBACTAM SODIUM [Concomitant]
     Active Substance: PIPERACILLIN SODIUM\TAZOBACTAM SODIUM
     Dosage: 1920 MILLIGRAM, QID
     Route: 042
     Dates: start: 20220718, end: 20220719
  34. PIPERACILLIN SODIUM\TAZOBACTAM SODIUM [Concomitant]
     Active Substance: PIPERACILLIN SODIUM\TAZOBACTAM SODIUM
     Dosage: UNK
     Route: 061
     Dates: start: 20220912
  35. PIPERACILLIN SODIUM\TAZOBACTAM SODIUM [Concomitant]
     Active Substance: PIPERACILLIN SODIUM\TAZOBACTAM SODIUM
     Dosage: 1920 MILLIGRAM
     Route: 042
     Dates: start: 20220912, end: 20220912
  36. VANCOMYCIN [Concomitant]
     Active Substance: VANCOMYCIN
     Indication: Bacteraemia
     Dosage: 150 MILLIGRAM
     Route: 042
     Dates: start: 20190614, end: 20190616
  37. VANCOMYCIN [Concomitant]
     Active Substance: VANCOMYCIN
     Indication: Sepsis
     Dosage: 15 MILLIGRAM/KILOGRAM
     Route: 042
     Dates: start: 20180808, end: 20180809
  38. VANCOMYCIN [Concomitant]
     Active Substance: VANCOMYCIN
     Indication: Device related infection
     Dosage: 160 MILLIGRAM
     Route: 042
     Dates: start: 20180816, end: 20180819
  39. VANCOMYCIN [Concomitant]
     Active Substance: VANCOMYCIN
     Indication: Device related sepsis
     Dosage: 120 MILLIGRAM
     Route: 042
     Dates: start: 20180220, end: 20180222
  40. VANCOMYCIN [Concomitant]
     Active Substance: VANCOMYCIN
     Indication: Postoperative wound infection
     Dosage: 130 MILLIGRAM
     Route: 042
     Dates: start: 20180522, end: 20180524
  41. VANCOMYCIN [Concomitant]
     Active Substance: VANCOMYCIN
     Indication: Pyrexia
     Dosage: 235 MILLIGRAM
     Route: 042
     Dates: start: 20180704, end: 20180717
  42. VANCOMYCIN [Concomitant]
     Active Substance: VANCOMYCIN
     Dosage: 215 MILLIGRAM
     Route: 042
     Dates: start: 20180211, end: 20180213
  43. VANCOMYCIN [Concomitant]
     Active Substance: VANCOMYCIN
     Dosage: 250 MILLIGRAM
     Route: 042
     Dates: start: 20180822, end: 20180824
  44. VANCOMYCIN [Concomitant]
     Active Substance: VANCOMYCIN
     Dosage: 15 MILLIGRAM/KILOGRAM
     Route: 042
     Dates: start: 20190803, end: 20190806
  45. VANCOMYCIN [Concomitant]
     Active Substance: VANCOMYCIN
     Dosage: 100 MILLIGRAM, TID
     Route: 042
     Dates: start: 20170623, end: 20170624
  46. VANCOMYCIN [Concomitant]
     Active Substance: VANCOMYCIN
     Dosage: 85 MILLIGRAM, TID
     Route: 042
     Dates: start: 20170417, end: 20170419
  47. VANCOMYCIN [Concomitant]
     Active Substance: VANCOMYCIN
     Dosage: 100 MILLIGRAM, TID
     Route: 042
     Dates: start: 20170720, end: 20170721
  48. VANCOMYCIN [Concomitant]
     Active Substance: VANCOMYCIN
     Dosage: 75 MILLIGRAM
     Route: 042
     Dates: start: 20171113, end: 20171113
  49. VANCOMYCIN [Concomitant]
     Active Substance: VANCOMYCIN
     Dosage: 115 MILLIGRAM, TID
     Route: 042
     Dates: start: 20171114, end: 20171119
  50. VANCOMYCIN [Concomitant]
     Active Substance: VANCOMYCIN
     Dosage: 160 MILLIGRAM, TID
     Route: 042
     Dates: start: 20190823, end: 20190829
  51. VANCOMYCIN [Concomitant]
     Active Substance: VANCOMYCIN
     Dosage: 145 MILLIGRAM, TID
     Route: 042
     Dates: start: 20170826, end: 20170826
  52. VANCOMYCIN [Concomitant]
     Active Substance: VANCOMYCIN
     Dosage: 85 MILLIGRAM, TID
     Route: 042
     Dates: start: 20170519, end: 20170520
  53. VANCOMYCIN [Concomitant]
     Active Substance: VANCOMYCIN
     Dosage: 60 MILLIGRAM, TID
     Route: 042
     Dates: start: 20161109, end: 20161111
  54. VANCOMYCIN [Concomitant]
     Active Substance: VANCOMYCIN
     Dosage: 80 MILLIGRAM, TID
     Route: 042
     Dates: start: 20170311, end: 20170311
  55. VANCOMYCIN [Concomitant]
     Active Substance: VANCOMYCIN
     Dosage: 80 MILLIGRAM, TID
     Route: 042
     Dates: start: 20170408, end: 20170410
  56. VANCOMYCIN [Concomitant]
     Active Substance: VANCOMYCIN
     Dosage: 105 MILLIGRAM, TID
     Route: 042
     Dates: start: 20170926, end: 20170928
  57. VANCOMYCIN [Concomitant]
     Active Substance: VANCOMYCIN
     Dosage: 55 MILLIGRAM, QID
     Route: 042
     Dates: start: 20161019, end: 20161020
  58. VANCOMYCIN [Concomitant]
     Active Substance: VANCOMYCIN
     Dosage: 110 MILLIGRAM, TID
     Route: 042
     Dates: start: 20171214, end: 20171219
  59. VANCOMYCIN [Concomitant]
     Active Substance: VANCOMYCIN
     Dosage: 100 MILLIGRAM, TID
     Route: 042
     Dates: start: 20170623, end: 20170624
  60. VANCOMYCIN [Concomitant]
     Active Substance: VANCOMYCIN
     Dosage: 160 MILLIGRAM
     Route: 042
     Dates: start: 20191107, end: 20191109
  61. VANCOMYCIN [Concomitant]
     Active Substance: VANCOMYCIN
     Dosage: 160 MILLIGRAM, QD
     Route: 042
     Dates: start: 20191106, end: 20191107
  62. VANCOMYCIN [Concomitant]
     Active Substance: VANCOMYCIN
     Dosage: 165 MILLIGRAM
     Route: 042
     Dates: start: 20191209, end: 20191211
  63. VANCOMYCIN [Concomitant]
     Active Substance: VANCOMYCIN
     Dosage: 175 MILLIGRAM, QID
     Route: 042
     Dates: start: 20200212, end: 20200213
  64. VANCOMYCIN [Concomitant]
     Active Substance: VANCOMYCIN
     Dosage: 175 MILLIGRAM, TID
     Route: 042
     Dates: start: 20200213, end: 20200217
  65. VANCOMYCIN [Concomitant]
     Active Substance: VANCOMYCIN
     Dosage: 210 MILLIGRAM, TID
     Route: 042
     Dates: start: 20200921, end: 20201005
  66. VANCOMYCIN [Concomitant]
     Active Substance: VANCOMYCIN
     Dosage: 305 MILLIGRAM
     Route: 042
     Dates: start: 20201130, end: 20201130
  67. VANCOMYCIN [Concomitant]
     Active Substance: VANCOMYCIN
     Dosage: 220 MILLIGRAM
     Route: 042
     Dates: start: 20201220, end: 20201220
  68. VANCOMYCIN [Concomitant]
     Active Substance: VANCOMYCIN
     Dosage: 220 MILLIGRAM, QID
     Route: 042
     Dates: start: 20201221, end: 20201222
  69. VANCOMYCIN [Concomitant]
     Active Substance: VANCOMYCIN
     Dosage: 240 MILLIGRAM
     Route: 042
     Dates: start: 20210224, end: 20210224
  70. VANCOMYCIN [Concomitant]
     Active Substance: VANCOMYCIN
     Dosage: 290 MILLIGRAM, QD
     Route: 042
     Dates: start: 20220718, end: 20220719
  71. VANCOMYCIN [Concomitant]
     Active Substance: VANCOMYCIN
     Dosage: 290 MILLIGRAM, TID
     Route: 042
     Dates: start: 20220723, end: 20220726
  72. VANCOMYCIN [Concomitant]
     Active Substance: VANCOMYCIN
     Dosage: 285 MILLIGRAM
     Route: 042
     Dates: start: 20220912, end: 20220912
  73. VANCOMYCIN [Concomitant]
     Active Substance: VANCOMYCIN
     Dosage: 285 MILLIGRAM, BID
     Route: 042
     Dates: start: 20220913
  74. DEXTROSE\SODIUM CHLORIDE [Concomitant]
     Active Substance: DEXTROSE\SODIUM CHLORIDE
     Dosage: UNK
     Route: 042
     Dates: start: 20190614, end: 20190615
  75. CEFTRIAXONE [Concomitant]
     Active Substance: CEFTRIAXONE\CEFTRIAXONE SODIUM
     Indication: Sepsis
     Dosage: 480 MILLIGRAM
     Route: 042
     Dates: start: 20190614, end: 20190615
  76. CEFTRIAXONE [Concomitant]
     Active Substance: CEFTRIAXONE\CEFTRIAXONE SODIUM
     Indication: Bacteraemia
     Dosage: 392 MILLIGRAM, QD
     Route: 042
     Dates: start: 20180222, end: 20180223
  77. CEFTRIAXONE [Concomitant]
     Active Substance: CEFTRIAXONE\CEFTRIAXONE SODIUM
     Indication: Vascular device infection
     Dosage: 440 MILLIGRAM, QD
     Route: 042
     Dates: start: 20180522, end: 20180524
  78. CEFTRIAXONE [Concomitant]
     Active Substance: CEFTRIAXONE\CEFTRIAXONE SODIUM
     Indication: Urinary tract infection
     Dosage: 800 MILLIGRAM, QD
     Route: 042
     Dates: start: 20180703, end: 20180704
  79. CEFTRIAXONE [Concomitant]
     Active Substance: CEFTRIAXONE\CEFTRIAXONE SODIUM
     Indication: Device related sepsis
     Dosage: 710 MILLIGRAM, QD
     Route: 042
     Dates: start: 20180217, end: 20180223
  80. CEFTRIAXONE [Concomitant]
     Active Substance: CEFTRIAXONE\CEFTRIAXONE SODIUM
     Dosage: 520 MILLIGRAM, QD
     Route: 042
     Dates: start: 20190805, end: 20190806
  81. CEFTRIAXONE [Concomitant]
     Active Substance: CEFTRIAXONE\CEFTRIAXONE SODIUM
     Dosage: 328 MILLIGRAM, QD
     Route: 042
     Dates: start: 20170719, end: 20170719
  82. CEFTRIAXONE [Concomitant]
     Active Substance: CEFTRIAXONE\CEFTRIAXONE SODIUM
     Dosage: 368 MILLIGRAM, QD
     Route: 042
     Dates: start: 20170826, end: 20170827
  83. CEFTRIAXONE [Concomitant]
     Active Substance: CEFTRIAXONE\CEFTRIAXONE SODIUM
     Dosage: 192 MILLIGRAM, QD
     Route: 042
     Dates: start: 20161111, end: 20161121
  84. CEFTRIAXONE [Concomitant]
     Active Substance: CEFTRIAXONE\CEFTRIAXONE SODIUM
     Dosage: 216 MILLIGRAM, QD
     Route: 042
     Dates: start: 20161231, end: 20170101
  85. CEFTRIAXONE [Concomitant]
     Active Substance: CEFTRIAXONE\CEFTRIAXONE SODIUM
     Dosage: 216 MILLIGRAM, QD
     Route: 042
     Dates: start: 20161231, end: 20170101
  86. CEFTRIAXONE [Concomitant]
     Active Substance: CEFTRIAXONE\CEFTRIAXONE SODIUM
     Dosage: 368 MILLIGRAM, QD
     Route: 042
     Dates: start: 20171217, end: 20171219
  87. CEFTRIAXONE [Concomitant]
     Active Substance: CEFTRIAXONE\CEFTRIAXONE SODIUM
     Dosage: 520 MILLIGRAM, QD
     Route: 042
     Dates: start: 20191108, end: 20191111
  88. CEFTRIAXONE [Concomitant]
     Active Substance: CEFTRIAXONE\CEFTRIAXONE SODIUM
     Dosage: 530 MILLIGRAM, QD
     Route: 042
     Dates: start: 20191108, end: 20191111
  89. CEFTRIAXONE [Concomitant]
     Active Substance: CEFTRIAXONE\CEFTRIAXONE SODIUM
     Dosage: 560 MILLIGRAM, QD
     Route: 042
     Dates: start: 20191211, end: 20191216
  90. CEFTRIAXONE [Concomitant]
     Active Substance: CEFTRIAXONE\CEFTRIAXONE SODIUM
     Dosage: 560 MILLIGRAM
     Route: 042
     Dates: start: 20200410, end: 20200410
  91. CEFTRIAXONE [Concomitant]
     Active Substance: CEFTRIAXONE\CEFTRIAXONE SODIUM
     Dosage: 700 MILLIGRAM, QD
     Route: 042
     Dates: start: 20200921, end: 20201005
  92. CEFTRIAXONE [Concomitant]
     Active Substance: CEFTRIAXONE\CEFTRIAXONE SODIUM
     Dosage: 960 MILLIGRAM, QD
     Route: 042
     Dates: start: 20220718, end: 20220718
  93. SODIUM CHLORIDE [Concomitant]
     Active Substance: SODIUM CHLORIDE
     Dosage: UNK
     Route: 042
     Dates: start: 20190614, end: 20190614
  94. SODIUM CHLORIDE [Concomitant]
     Active Substance: SODIUM CHLORIDE
     Dosage: UNK
     Route: 042
     Dates: start: 20220406, end: 20220406
  95. CEFEPIME [Concomitant]
     Active Substance: CEFEPIME HYDROCHLORIDE
     Indication: Sepsis
     Dosage: 50 MILLIGRAM/KILOGRAM
     Route: 042
     Dates: start: 20180808, end: 20180819
  96. CEFEPIME [Concomitant]
     Active Substance: CEFEPIME HYDROCHLORIDE
     Indication: Bacteraemia
     Dosage: 400 MILLIGRAM
     Route: 042
     Dates: start: 20180219, end: 20180219
  97. CEFEPIME [Concomitant]
     Active Substance: CEFEPIME HYDROCHLORIDE
     Indication: Device related infection
     Dosage: 780 MILLIGRAM
     Route: 042
     Dates: start: 20180704, end: 20180704
  98. CEFEPIME [Concomitant]
     Active Substance: CEFEPIME HYDROCHLORIDE
     Dosage: 720 MILLIGRAM
     Route: 042
     Dates: start: 20180216, end: 20180218
  99. CEFEPIME [Concomitant]
     Active Substance: CEFEPIME HYDROCHLORIDE
     Dosage: 520 MILLIGRAM
     Route: 042
     Dates: start: 20190802, end: 20190802
  100. CEFEPIME [Concomitant]
     Active Substance: CEFEPIME HYDROCHLORIDE
     Dosage: 280 MILLIGRAM, TID
     Route: 042
     Dates: start: 20170417, end: 20170420
  101. CEFEPIME [Concomitant]
     Active Substance: CEFEPIME HYDROCHLORIDE
     Dosage: 540 MILLIGRAM, QID
     Route: 042
     Dates: start: 20190823, end: 20190825
  102. CEFEPIME [Concomitant]
     Active Substance: CEFEPIME HYDROCHLORIDE
     Dosage: 740 MILLIGRAM
     Route: 042
  103. FLAGYL [Concomitant]
     Active Substance: METRONIDAZOLE\METRONIDAZOLE HYDROCHLORIDE
     Indication: Sepsis
     Dosage: 13 MILLIGRAM/KILOGRAM
     Route: 042
     Dates: start: 20180809, end: 20180810
  104. FLAGYL [Concomitant]
     Active Substance: METRONIDAZOLE\METRONIDAZOLE HYDROCHLORIDE
     Indication: Prophylaxis
     Dosage: 2.4 MILLILITER, BID
     Route: 050
     Dates: start: 20210713
  105. LANSOPRAZOLE [Concomitant]
     Active Substance: LANSOPRAZOLE
     Dosage: 7.50 MILLIGRAM, QD
     Route: 048
     Dates: start: 20180708, end: 20180717
  106. CEFOXITIN [Concomitant]
     Active Substance: CEFOXITIN SODIUM
     Indication: Abdominal infection
     Dosage: 560 MILLIGRAM
     Route: 042
     Dates: start: 20180821, end: 20180822
  107. CEFOXITIN [Concomitant]
     Active Substance: CEFOXITIN SODIUM
     Indication: Prophylaxis
  108. LOPERAMIDE [Concomitant]
     Active Substance: LOPERAMIDE
     Dosage: 1.50 MILLIGRAM, TID
     Route: 048
     Dates: start: 20180910, end: 20181003
  109. METRONIDAZOLE [Concomitant]
     Active Substance: METRONIDAZOLE
     Indication: Inflammatory bowel disease
     Dosage: 125 MILLIGRAM
     Route: 042
     Dates: start: 20180905, end: 20180910
  110. PANTOPRAZOLE [Concomitant]
     Active Substance: PANTOPRAZOLE
     Indication: Malabsorption
     Dosage: 16.80 MILLIGRAM, BID
     Route: 042
     Dates: start: 20180826, end: 20180910
  111. PANTOPRAZOLE [Concomitant]
     Active Substance: PANTOPRAZOLE
     Dosage: 16.80 MILLIGRAM, BID
     Route: 042
     Dates: start: 20161113, end: 20161120
  112. BACTRIM [Concomitant]
     Active Substance: SULFAMETHOXAZOLE\TRIMETHOPRIM
     Indication: Urinary tract infection
     Dosage: 2 MILLILITER, QD
     Route: 048
     Dates: start: 20190509
  113. CEFTAZIDIME [Concomitant]
     Active Substance: CEFTAZIDIME
     Indication: Vascular device infection
     Dosage: 320 MILLIGRAM, TID
     Route: 042
     Dates: start: 20170624, end: 20170626
  114. CEFTAZIDIME [Concomitant]
     Active Substance: CEFTAZIDIME
     Indication: Bacteraemia
     Dosage: 260 MILLIGRAM, TID
     Route: 042
     Dates: start: 20170408, end: 20170410
  115. CLOTRIMAZOLE [Concomitant]
     Active Substance: CLOTRIMAZOLE
     Indication: Dermatitis diaper
     Dosage: UNK UNK, BID
     Route: 061
     Dates: start: 20170625, end: 20170627
  116. CLOTRIMAZOLE [Concomitant]
     Active Substance: CLOTRIMAZOLE
     Indication: Rash
     Dosage: UNK UNK, BID
     Route: 061
     Dates: start: 20170405, end: 20170410
  117. CLOTRIMAZOLE [Concomitant]
     Active Substance: CLOTRIMAZOLE
     Dosage: UNK UNK, BID
     Route: 061
     Dates: start: 20170926, end: 20170928
  118. MICAFUNGIN [Concomitant]
     Active Substance: MICAFUNGIN SODIUM
     Indication: Systemic candida
     Dosage: 17 MILLIGRAM, QD
     Route: 042
     Dates: start: 20170418, end: 20170420
  119. MICAFUNGIN [Concomitant]
     Active Substance: MICAFUNGIN SODIUM
     Dosage: 32 MILLIGRAM, QD
     Route: 042
     Dates: start: 20190823, end: 20190829
  120. MICAFUNGIN [Concomitant]
     Active Substance: MICAFUNGIN SODIUM
     Dosage: 23 MILLIGRAM, QD
     Route: 042
     Dates: start: 20191214, end: 20191218
  121. MICAFUNGIN [Concomitant]
     Active Substance: MICAFUNGIN SODIUM
     Dosage: 58 MILLIGRAM, TID
     Route: 042
     Dates: start: 20220719, end: 20220726
  122. RANITIDINE [Concomitant]
     Active Substance: RANITIDINE
     Dosage: 85 MILLIGRAM, QD
     Route: 050
     Dates: start: 20170418, end: 20170421
  123. RANITIDINE [Concomitant]
     Active Substance: RANITIDINE
     Dosage: 10 MILLIGRAM, QD
     Route: 042
     Dates: start: 20170827, end: 20170830
  124. RANITIDINE [Concomitant]
     Active Substance: RANITIDINE
     Dosage: 15 MILLIGRAM, QD
     Route: 048
     Dates: start: 20161231, end: 20170107
  125. FLUCONAZOLE [Concomitant]
     Active Substance: FLUCONAZOLE
     Indication: Fungaemia
     Dosage: 66 MILLIGRAM, QD
     Route: 042
     Dates: start: 20170421, end: 20170421
  126. FLUCONAZOLE [Concomitant]
     Active Substance: FLUCONAZOLE
     Indication: Device related sepsis
     Dosage: 24 MILLIGRAM
     Route: 042
     Dates: start: 20161110, end: 20161121
  127. FLUCONAZOLE [Concomitant]
     Active Substance: FLUCONAZOLE
     Indication: Infection
  128. AMPICILLIN [Concomitant]
     Active Substance: AMPICILLIN
     Indication: Bacteraemia
     Dosage: 320 MILLIGRAM, QID
     Route: 042
     Dates: start: 20170721, end: 20170723
  129. AMPICILLIN [Concomitant]
     Active Substance: AMPICILLIN
     Dosage: 360 MILLIGRAM, QID
     Route: 042
     Dates: start: 20170827, end: 20170901
  130. AMPICILLIN [Concomitant]
     Active Substance: AMPICILLIN
     Dosage: 320 MILLIGRAM, QID
     Route: 042
     Dates: start: 20170102, end: 20170107
  131. AMPICILLIN [Concomitant]
     Active Substance: AMPICILLIN
     Dosage: 140 MILLIGRAM, QID
     Route: 042
     Dates: start: 20161021, end: 20161031
  132. TRIAMCINOLONE ACETONIDE [Concomitant]
     Active Substance: TRIAMCINOLONE ACETONIDE
     Indication: Excessive granulation tissue
     Dosage: 115 MILLIGRAM, BID
     Route: 061
     Dates: start: 20171114, end: 20171119
  133. TRIAMCINOLONE ACETONIDE [Concomitant]
     Active Substance: TRIAMCINOLONE ACETONIDE
     Dosage: UNK UNK, BID
     Route: 061
     Dates: start: 20161020, end: 20161031
  134. ACETAMINOPHEN [Concomitant]
     Active Substance: ACETAMINOPHEN
     Indication: Pain
     Dosage: 80 MILLIGRAM
     Route: 048
     Dates: start: 20171114, end: 20171120
  135. ACETAMINOPHEN [Concomitant]
     Active Substance: ACETAMINOPHEN
     Indication: Pyrexia
     Dosage: 260 MILLIGRAM, QID
     Route: 048
     Dates: start: 20170311, end: 20170315
  136. ACETAMINOPHEN [Concomitant]
     Active Substance: ACETAMINOPHEN
     Indication: Bacteraemia
     Dosage: 160 MILLIGRAM
     Route: 050
     Dates: start: 20201223, end: 20201223
  137. LIDOCAINE [Concomitant]
     Active Substance: LIDOCAINE
     Indication: Pain
     Dosage: 1 GRAM
     Route: 061
     Dates: start: 20171114, end: 20171120
  138. LIDOCAINE [Concomitant]
     Active Substance: LIDOCAINE
     Indication: Central venous catheterisation
     Dosage: 10 MILLIGRAM
     Route: 050
     Dates: start: 20200307, end: 20200307
  139. ONDANSETRON [Concomitant]
     Active Substance: ONDANSETRON
     Indication: Nausea
     Dosage: 1.12 MILLIGRAM, TID
     Route: 048
     Dates: start: 20170519, end: 20170523
  140. DEXTROSE [Concomitant]
     Active Substance: DEXTROSE\DEXTROSE MONOHYDRATE
     Indication: Hypoglycaemia
     Dosage: 29 MILLILITER
     Route: 042
     Dates: start: 20170520, end: 20170523
  141. DEXTROSE [Concomitant]
     Active Substance: DEXTROSE\DEXTROSE MONOHYDRATE
     Indication: Hypoglycaemia
     Dosage: 35 MILLILITER
     Route: 042
     Dates: start: 20180201, end: 20180201
  142. DEXTROSE [Concomitant]
     Active Substance: DEXTROSE\DEXTROSE MONOHYDRATE
     Dosage: 20 MILLILITER
     Route: 042
     Dates: start: 20170201, end: 20170201
  143. DEXTROSE [Concomitant]
     Active Substance: DEXTROSE\DEXTROSE MONOHYDRATE
     Dosage: 20 MILLILITER
     Route: 042
     Dates: start: 20170206, end: 20170206
  144. DEXTROSE [Concomitant]
     Active Substance: DEXTROSE\DEXTROSE MONOHYDRATE
     Dosage: 20 MILLILITER
     Route: 042
     Dates: start: 20170217, end: 20170217
  145. GENTAMICIN [Concomitant]
     Active Substance: GENTAMICIN
     Indication: Bacteraemia
     Dosage: 5.20 MILLIGRAM, TID
     Route: 042
     Dates: start: 20170313, end: 20170520
  146. GLUCAGON [Concomitant]
     Active Substance: GLUCAGON\GLUCAGON HYDROCHLORIDE\WATER
     Indication: Hypoglycaemia
     Dosage: 0.50 MILLIGRAM
     Route: 042
     Dates: start: 20170407, end: 20170410
  147. IOHEXOL [Concomitant]
     Active Substance: IOHEXOL
     Dosage: 80 MILLILITER
     Route: 050
     Dates: start: 20180618, end: 20180628
  148. AMPICILLIN SODIUM\SULBACTAM SODIUM [Concomitant]
     Active Substance: AMPICILLIN SODIUM\SULBACTAM SODIUM
     Indication: Sinusitis
     Dosage: 360 MILLIGRAM, QID
     Route: 042
     Dates: start: 20160928, end: 20160929
  149. AMPICILLIN SODIUM\SULBACTAM SODIUM [Concomitant]
     Active Substance: AMPICILLIN SODIUM\SULBACTAM SODIUM
     Indication: Urinary tract infection
  150. GENTAMICIN [Concomitant]
     Active Substance: GENTAMICIN
     Indication: Bacteraemia
     Dosage: 3.60 MILLIGRAM, TID
     Route: 042
     Dates: start: 20161022, end: 20161031
  151. GENTAMICIN [Concomitant]
     Active Substance: GENTAMICIN
     Indication: Vascular device infection
  152. ZOSYN [Concomitant]
     Active Substance: PIPERACILLIN SODIUM\TAZOBACTAM SODIUM
     Indication: Bacteraemia
     Dosage: 1080 MILLIGRAM
     Route: 042
     Dates: start: 20191106, end: 20191106
  153. ZOSYN [Concomitant]
     Active Substance: PIPERACILLIN SODIUM\TAZOBACTAM SODIUM
     Indication: Pyrexia
     Dosage: 1080 MILLIGRAM
     Route: 042
     Dates: start: 20191107, end: 20191108
  154. ZOSYN [Concomitant]
     Active Substance: PIPERACILLIN SODIUM\TAZOBACTAM SODIUM
     Dosage: 1980 MILLIGRAM
     Route: 042
     Dates: start: 20220912, end: 20220912
  155. MORPHINE [Concomitant]
     Active Substance: MORPHINE
     Dosage: 0.54 MILLIGRAM
     Route: 042
     Dates: start: 20191210, end: 20191218
  156. SULFAMETHOXAZOLE AND TRIMETHOPRIM [Concomitant]
     Active Substance: SULFAMETHOXAZOLE\TRIMETHOPRIM
     Indication: Urinary tract infection
     Dosage: 16 MILLIGRAM, QD
     Route: 048
     Dates: start: 20200213, end: 20200216
  157. SULFAMETHOXAZOLE AND TRIMETHOPRIM [Concomitant]
     Active Substance: SULFAMETHOXAZOLE\TRIMETHOPRIM
     Indication: Prophylaxis
     Dosage: 16 MILLIGRAM, QD
     Route: 048
     Dates: start: 20201221, end: 20201228
  158. SULFAMETHOXAZOLE AND TRIMETHOPRIM [Concomitant]
     Active Substance: SULFAMETHOXAZOLE\TRIMETHOPRIM
     Indication: Pneumonia
     Dosage: 16 MILLIGRAM, QD
     Route: 048
     Dates: start: 20210812, end: 20210813
  159. SULFAMETHOXAZOLE AND TRIMETHOPRIM [Concomitant]
     Active Substance: SULFAMETHOXAZOLE\TRIMETHOPRIM
     Dosage: 2 MILLILITER, QD
     Route: 048
     Dates: start: 20200410
  160. SULFAMETHOXAZOLE AND TRIMETHOPRIM [Concomitant]
     Active Substance: SULFAMETHOXAZOLE\TRIMETHOPRIM
     Dosage: 16 MILLIGRAM, QD
     Route: 048
     Dates: start: 20210717, end: 20210717
  161. DERMABOND [Concomitant]
     Active Substance: OCRYLATE
     Indication: Central venous catheterisation
     Dosage: UNK
     Route: 061
     Dates: start: 20200307, end: 20200307
  162. HEPARIN [Concomitant]
     Active Substance: HEPARIN SODIUM
     Indication: Central venous catheterisation
     Dosage: UNK
     Route: 042
     Dates: start: 20200307, end: 20200307
  163. HEPARIN [Concomitant]
     Active Substance: HEPARIN SODIUM
     Indication: Thrombosis
     Dosage: 3 MILLILITER
     Route: 042
     Dates: start: 20220406, end: 20220406
  164. HEPARIN [Concomitant]
     Active Substance: HEPARIN SODIUM
     Dosage: UNK
     Route: 050
     Dates: start: 20220913, end: 20221006
  165. HEPARIN [Concomitant]
     Active Substance: HEPARIN SODIUM
     Dosage: UNK
     Route: 042
     Dates: start: 20221001, end: 20221006
  166. SODIUM CHLORIDE [Concomitant]
     Active Substance: SODIUM CHLORIDE
     Dosage: 250 MILLILITER
     Route: 042
     Dates: start: 20200921, end: 20200921
  167. CEFAZOLIN [Concomitant]
     Active Substance: CEFAZOLIN
     Indication: Device related infection
     Dosage: 740 MILLIGRAM, TID
     Route: 042
     Dates: start: 20201222, end: 20201228
  168. CEFAZOLIN [Concomitant]
     Active Substance: CEFAZOLIN
     Indication: Bacterial infection
     Dosage: 760 MILLIGRAM
     Route: 042
     Dates: start: 20210224, end: 20210301
  169. CITRIC ACID MONOHYDRATE\SODIUM CITRATE [Concomitant]
     Active Substance: CITRIC ACID MONOHYDRATE\SODIUM CITRATE
     Dosage: 5 MILLILITER, TID
     Route: 050
     Dates: start: 20210422, end: 20210522
  170. CITRIC ACID MONOHYDRATE\SODIUM CITRATE [Concomitant]
     Active Substance: CITRIC ACID MONOHYDRATE\SODIUM CITRATE
     Dosage: 5 MILLILITER, BID
     Route: 050
     Dates: start: 20210811, end: 20210813
  171. ENOXAPARIN [Concomitant]
     Active Substance: ENOXAPARIN
     Indication: Thrombosis
     Dosage: 18 MILLIGRAM, BID
     Route: 058
     Dates: start: 20210811, end: 20210813
  172. ENOXAPARIN [Concomitant]
     Active Substance: ENOXAPARIN
     Indication: Superior vena cava syndrome
     Dosage: 0.09 MILLILITER, BID
     Route: 058
     Dates: start: 20220314
  173. ENOXAPARIN [Concomitant]
     Active Substance: ENOXAPARIN
     Indication: Thrombosis
     Dosage: 9 MILLILITER, BID
     Route: 058
     Dates: start: 20220719, end: 20220721
  174. ENOXAPARIN [Concomitant]
     Active Substance: ENOXAPARIN
     Dosage: 10 MILLIGRAM, BID
     Route: 058
     Dates: start: 20220722, end: 20220722
  175. ENOXAPARIN [Concomitant]
     Active Substance: ENOXAPARIN
     Dosage: 20 MILLIGRAM, BID
     Route: 058
     Dates: start: 20220722, end: 20220724
  176. ENOXAPARIN [Concomitant]
     Active Substance: ENOXAPARIN
     Dosage: 100 MILLIGRAM, BID
     Route: 058
     Dates: start: 20220726
  177. ENOXAPARIN [Concomitant]
     Active Substance: ENOXAPARIN
     Dosage: 10 MILLIGRAM, BID
     Route: 058
     Dates: start: 20220912
  178. ENOXAPARIN [Concomitant]
     Active Substance: ENOXAPARIN
     Dosage: 20 MILLIGRAM, BID
     Route: 058
     Dates: start: 20220922, end: 20220929
  179. ENOXAPARIN [Concomitant]
     Active Substance: ENOXAPARIN
     Dosage: 19 MILLIGRAM, BID
     Route: 058
     Dates: start: 20221001, end: 20221006
  180. CHOLECALCIFEROL [Concomitant]
     Active Substance: CHOLECALCIFEROL
     Dosage: 800 INTERNATIONAL UNIT, QD
     Route: 048
     Dates: start: 20210812
  181. ALBUTEROL [Concomitant]
     Active Substance: ALBUTEROL
     Indication: Wheezing
     Dosage: 1.25 MILLIGRAM, QID
     Route: 050
     Dates: start: 20220404, end: 20220405
  182. FLONASE [Concomitant]
     Active Substance: FLUTICASONE PROPIONATE
     Indication: Rhinitis allergic
     Dosage: 50 MICROGRAM, BID
     Route: 050
     Dates: start: 20220719

REACTIONS (1)
  - Vascular device infection [Recovered/Resolved]

NARRATIVE: CASE EVENT DATE: 20210223
